FAERS Safety Report 4843283-6 (Version None)
Quarter: 2005Q4

REPORT INFORMATION
  Report Type: 
  Country: None (occurrence: None)
  Receive Date: 20051201
  Receipt Date: 20051123
  Transmission Date: 20060501
  Serious: Yes (Hospitalization)
  Sender: FDA-Public Use
  Company Number: ZA-MERCK-0511ZAF00031

PATIENT
  Age: 50 Year
  Sex: Female

DRUGS (4)
  1. PRIMAXIN [Suspect]
     Indication: PSEUDOMONAL SEPSIS
     Route: 042
     Dates: start: 20051101
  2. PRIMAXIN [Suspect]
     Route: 042
     Dates: end: 20051122
  3. MIDAZOLAM [Suspect]
     Indication: SEDATION
     Route: 065
  4. AMIKACIN [Concomitant]
     Indication: PSEUDOMONAL SEPSIS
     Route: 065
     Dates: start: 20051101

REACTIONS (7)
  - HAEMODIALYSIS [None]
  - JAUNDICE [None]
  - LOSS OF CONSCIOUSNESS [None]
  - MUSCLE TWITCHING [None]
  - PRESCRIBED OVERDOSE [None]
  - RENAL FAILURE [None]
  - SHOCK [None]
